FAERS Safety Report 17161783 (Version 1)
Quarter: 2019Q4

REPORT INFORMATION
  Report Type: Spontaneous
  Country: MY (occurrence: MY)
  Receive Date: 20191217
  Receipt Date: 20191217
  Transmission Date: 20200122
  Serious: Yes (Other)
  Sender: FDA-Public Use
  Company Number: MY-SUN PHARMACEUTICAL INDUSTRIES LTD-2019R1-230628

PATIENT
  Age: 23 Year
  Sex: Male

DRUGS (1)
  1. ROZIDAL [Suspect]
     Active Substance: RISPERIDONE
     Indication: SCHIZOPHRENIA
     Dosage: 4 MILLIGRAM, DAILY
     Route: 048

REACTIONS (6)
  - Fatigue [Recovered/Resolved]
  - Dizziness [Recovered/Resolved]
  - Salivary hypersecretion [Recovered/Resolved]
  - Insomnia [Recovered/Resolved]
  - Pain [Recovered/Resolved]
  - Musculoskeletal stiffness [Recovered/Resolved]
